FAERS Safety Report 7536048-8 (Version None)
Quarter: 2011Q2

REPORT INFORMATION
  Report Type: 
  Country: None (occurrence: None)
  Receive Date: 20110609
  Receipt Date: 20110603
  Transmission Date: 20111010
  Serious: Yes (Death, Hospitalization, Other)
  Sender: FDA-Public Use
  Company Number: US-ASTELLAS-2011US002716

PATIENT
  Sex: Male
  Weight: 86 kg

DRUGS (2)
  1. PROGRAF [Suspect]
     Indication: LUNG TRANSPLANT
     Dosage: 1 MG, BID
     Route: 048
     Dates: start: 20091001, end: 20110201
  2. PREDNISONE [Concomitant]
     Indication: LUNG TRANSPLANT
     Dosage: UNK
     Route: 065
     Dates: end: 20110201

REACTIONS (4)
  - DEATH [None]
  - OFF LABEL USE [None]
  - HOSPITALISATION [None]
  - INFECTION [None]
